FAERS Safety Report 9054405 (Version 3)
Quarter: 2013Q1

REPORT INFORMATION
  Report Type: Report from Study
  Country: TR (occurrence: TR)
  Receive Date: 20130208
  Receipt Date: 20130227
  Transmission Date: 20140127
  Serious: Yes (Life-Threatening, Hospitalization, Other)
  Sender: FDA-Public Use
  Company Number: TR-TEVA-384035USA

PATIENT
  Age: 65 None
  Sex: Male
  Weight: 72 kg

DRUGS (9)
  1. TREANDA [Suspect]
     Indication: CHRONIC LYMPHOCYTIC LEUKAEMIA
     Route: 042
     Dates: start: 20121220, end: 20130117
  2. TREANDA [Suspect]
     Indication: LYMPHOCYTIC LYMPHOMA
  3. PCI-32765CLL3001 [Suspect]
     Indication: CHRONIC LYMPHOCYTIC LEUKAEMIA
     Dosage: UID/QD
     Route: 048
     Dates: start: 20121220, end: 20130121
  4. PCI-32765CLL3001 [Suspect]
     Indication: LYMPHOCYTIC LYMPHOMA
  5. RITUXIMAB [Suspect]
     Indication: CHRONIC LYMPHOCYTIC LEUKAEMIA
     Route: 042
     Dates: start: 20121219, end: 20130117
  6. RITUXIMAB [Suspect]
     Indication: LYMPHOCYTIC LYMPHOMA
  7. LEVEMIR [Concomitant]
     Indication: DIABETES MELLITUS
  8. EYE DROPS [Concomitant]
     Indication: DIABETES MELLITUS
  9. NOVORAPID [Concomitant]
     Indication: DIABETES MELLITUS

REACTIONS (1)
  - Acute myocardial infarction [Recovered/Resolved]
